FAERS Safety Report 23991636 (Version 1)
Quarter: 2024Q2

REPORT INFORMATION
  Report Type: Spontaneous
  Country: GR (occurrence: GR)
  Receive Date: 20240619
  Receipt Date: 20240619
  Transmission Date: 20240716
  Serious: Yes (Hospitalization, Other)
  Sender: FDA-Public Use
  Company Number: GR-GLAXOSMITHKLINE-GR2024EME073968

PATIENT

DRUGS (5)
  1. ALBUTEROL [Suspect]
     Active Substance: ALBUTEROL
     Indication: Product used for unknown indication
     Dosage: UNK
  2. ACETAMINOPHEN [Suspect]
     Active Substance: ACETAMINOPHEN
     Indication: Product used for unknown indication
     Dosage: UNK
  3. DESLORATADINE [Concomitant]
     Active Substance: DESLORATADINE
     Indication: Product used for unknown indication
  4. LEVOCETIRIZINE [Concomitant]
     Active Substance: LEVOCETIRIZINE
     Indication: Product used for unknown indication
     Dosage: UNK
  5. IBUPROFEN [Concomitant]
     Active Substance: IBUPROFEN
     Indication: Product used for unknown indication
     Dosage: UNK

REACTIONS (21)
  - Stevens-Johnson syndrome [Unknown]
  - Respiratory distress [Unknown]
  - Pyrexia [Unknown]
  - Rash [Unknown]
  - Malaise [Unknown]
  - Cough [Unknown]
  - Rash macular [Unknown]
  - Conjunctivitis [Unknown]
  - Photophobia [Unknown]
  - Tachycardia [Unknown]
  - Illness [Unknown]
  - Rales [Unknown]
  - Wheezing [Unknown]
  - Blister [Unknown]
  - Purpura [Unknown]
  - Laryngitis [Unknown]
  - Hyponatraemia [Unknown]
  - Lymphopenia [Unknown]
  - Hyperglycaemia [Unknown]
  - Hypoalbuminaemia [Unknown]
  - Symblepharon [Unknown]
